FAERS Safety Report 11089486 (Version 3)
Quarter: 2015Q2

REPORT INFORMATION
  Report Type: Report from Study
  Country: TW (occurrence: TW)
  Receive Date: 20150505
  Receipt Date: 20150622
  Transmission Date: 20150821
  Serious: Yes (Death, Hospitalization)
  Sender: FDA-Public Use
  Company Number: TW-BRISTOL-MYERS SQUIBB COMPANY-BMS-2015-027645

PATIENT
  Age: 41 Year
  Sex: Male
  Weight: 48 kg

DRUGS (7)
  1. TS-1 [Concomitant]
     Active Substance: GIMERACIL\OTERACIL\TEGAFUR
     Indication: GINGIVAL CANCER
  2. PHYXOL [Concomitant]
     Indication: HEAD AND NECK CANCER METASTATIC
     Dosage: 100 MG, UNK
     Route: 065
  3. PHYXOL [Concomitant]
     Indication: GINGIVAL CANCER
  4. TS-1 [Concomitant]
     Active Substance: GIMERACIL\OTERACIL\TEGAFUR
     Indication: METASTASES TO BONE
  5. CETUXIMAB [Suspect]
     Active Substance: CETUXIMAB
     Indication: HEAD AND NECK CANCER METASTATIC
     Dosage: 500 MG, UNK
     Route: 065
     Dates: start: 20150115, end: 201504
  6. TS-1 [Concomitant]
     Active Substance: GIMERACIL\OTERACIL\TEGAFUR
     Indication: HEAD AND NECK CANCER METASTATIC
     Dosage: 1 DF, BID
     Route: 065
  7. PHYXOL [Concomitant]
     Indication: METASTASES TO BONE

REACTIONS (3)
  - Malignant neoplasm progression [Fatal]
  - Neck pain [Not Recovered/Not Resolved]
  - Wound haemorrhage [Not Recovered/Not Resolved]

NARRATIVE: CASE EVENT DATE: 20150309
